FAERS Safety Report 8034282-4 (Version None)
Quarter: 2012Q1

REPORT INFORMATION
  Report Type: 
  Country: None (occurrence: None)
  Receive Date: 20120110
  Receipt Date: 20120103
  Transmission Date: 20120608
  Serious: Yes (Disabling)
  Sender: FDA-Public Use
  Company Number: PHHY2012CA000850

PATIENT
  Sex: Female
  Weight: 84 kg

DRUGS (20)
  1. SYNTHROID [Concomitant]
  2. FOSAMAX [Concomitant]
     Dosage: 70 MG, QW
     Dates: start: 20010118, end: 20100317
  3. CALCIUM ACETATE [Concomitant]
     Dosage: 1000 MG, UNK
     Dates: start: 20010118
  4. ZOLEDRONOC ACID [Suspect]
     Indication: OSTEOPOROSIS
     Dosage: 5 MG, ANNUALLY
     Route: 042
     Dates: start: 20100324
  5. ZOLEDRONOC ACID [Suspect]
     Dosage: 5 MG, ANNUALLY
     Route: 042
     Dates: start: 20110323
  6. ADALAT CC [Concomitant]
  7. IMDUR [Concomitant]
  8. DIDROCAL [Concomitant]
     Dosage: 400 MG, QD
  9. METFORMIN HCL [Concomitant]
  10. FORTEO [Concomitant]
     Dosage: 20 MG, QD
  11. LISINOPRIL [Concomitant]
  12. CRESTOR [Concomitant]
  13. VITAMIN D [Concomitant]
     Dosage: 800 IU, QD
     Dates: start: 20010118
  14. HYDRO [Concomitant]
  15. EVISTA [Concomitant]
     Dosage: 670 MG, QD
  16. HORMONES [Concomitant]
     Dosage: UNK UKN, QD
  17. REGULAR INSULIN [Concomitant]
  18. METOPROLOL SUCCINATE [Concomitant]
  19. ASPIRIN [Concomitant]
  20. MIACALCIN [Concomitant]
     Dosage: 200 IU, QD

REACTIONS (3)
  - RENAL IMPAIRMENT [None]
  - CARDIAC ARREST [None]
  - RENAL FAILURE ACUTE [None]
